FAERS Safety Report 8372603-3 (Version None)
Quarter: 2012Q2

REPORT INFORMATION
  Report Type: 
  Country: None (occurrence: None)
  Receive Date: 20120521
  Receipt Date: 20120516
  Transmission Date: 20120825
  Serious: Yes (Hospitalization)
  Sender: FDA-Public Use
  Company Number: PHHY2011JP51376

PATIENT
  Sex: Male
  Weight: 29.9 kg

DRUGS (8)
  1. EXJADE [Suspect]
     Dosage: 500 MG, DAILY
     Dates: start: 20080815, end: 20091014
  2. OSELTAMIVIR PHOSPHATE [Suspect]
     Dosage: 100 MG, DAILY
     Dates: start: 20091006, end: 20091101
  3. ALFAROL [Concomitant]
     Indication: THALASSAEMIA BETA
     Dosage: 3 ML, UNK
     Route: 048
  4. EXJADE [Suspect]
     Indication: IRON OVERLOAD
     Dosage: 166 MG, DAILY
     Route: 048
     Dates: start: 20080813, end: 20080813
  5. FOLIAMIN [Concomitant]
     Indication: THALASSAEMIA BETA
     Dosage: 10 MG, UNK
     Route: 048
  6. DESFERAL [Concomitant]
     Indication: IRON OVERLOAD
     Route: 030
  7. EXJADE [Suspect]
     Dosage: 250 MG, DAILY
     Route: 048
     Dates: start: 20080814, end: 20080814
  8. VITAMIN B12 [Concomitant]
     Indication: THALASSAEMIA BETA
     Dosage: 250 UG, UNK
     Route: 048

REACTIONS (6)
  - DEHYDRATION [None]
  - RENAL FAILURE ACUTE [None]
  - URINE OUTPUT DECREASED [None]
  - INFLUENZA [None]
  - PULMONARY OEDEMA [None]
  - OEDEMA [None]
